FAERS Safety Report 19829304 (Version 2)
Quarter: 2021Q3

REPORT INFORMATION
  Report Type: Report from Study
  Country: IT (occurrence: IT)
  Receive Date: 20210914
  Receipt Date: 20210921
  Transmission Date: 20211014
  Serious: Yes (Hospitalization, Other)
  Sender: FDA-Public Use
  Company Number: IT-TAKEDA-2021TUS056288

PATIENT
  Age: 66 Year
  Sex: Male

DRUGS (8)
  1. VITALIPID [Concomitant]
     Active Substance: ERGOCALCIFEROL\PHYTONADIONE\RETINOL\TOCOPHEROL
     Indication: SHORT-BOWEL SYNDROME
     Dosage: 1.00 UNK, 2/WEEK
     Route: 042
  2. TEDUGLUTIDE [Suspect]
     Active Substance: TEDUGLUTIDE
     Indication: SHORT-BOWEL SYNDROME
     Dosage: 3.500 MILLIGRAM, QD
     Route: 065
     Dates: start: 20200617
  3. TEDUGLUTIDE [Suspect]
     Active Substance: TEDUGLUTIDE
     Indication: SHORT-BOWEL SYNDROME
     Dosage: 3.500 MILLIGRAM, QD
     Route: 065
     Dates: start: 20200617
  4. SOLUVIT [Concomitant]
     Active Substance: VITAMINS
     Indication: SHORT-BOWEL SYNDROME
     Dosage: 1 UNK, 2/WEEK
     Route: 042
  5. TEDUGLUTIDE [Suspect]
     Active Substance: TEDUGLUTIDE
     Indication: SHORT-BOWEL SYNDROME
     Dosage: 3.500 MILLIGRAM, QD
     Route: 065
     Dates: start: 20200617
  6. TEDUGLUTIDE [Suspect]
     Active Substance: TEDUGLUTIDE
     Indication: SHORT-BOWEL SYNDROME
     Dosage: 3.500 MILLIGRAM, QD
     Route: 065
     Dates: start: 20200617
  7. ADDAMEL [Concomitant]
     Active Substance: ELECTROLYTES NOS\MINERALS\SORBITOL
     Indication: SHORT-BOWEL SYNDROME
     Dosage: 1 UNK, 3/WEEK
     Route: 042
  8. TARGIN [Concomitant]
     Active Substance: NALOXONE HYDROCHLORIDE\OXYCODONE HYDROCHLORIDE
     Indication: BACK PAIN
     Dosage: 1 UNK, BID
     Route: 048
     Dates: start: 20190319, end: 20190319

REACTIONS (1)
  - Vascular device infection [Recovered/Resolved]

NARRATIVE: CASE EVENT DATE: 20210831
